FAERS Safety Report 18926504 (Version 1)
Quarter: 2021Q1

REPORT INFORMATION
  Report Type: Spontaneous
  Country: US (occurrence: US)
  Receive Date: 20210223
  Receipt Date: 20210223
  Transmission Date: 20210420
  Serious: No
  Sender: FDA-Public Use
  Company Number: US-SA-2021SA059974

PATIENT
  Sex: Male

DRUGS (2)
  1. DUPIXENT [Suspect]
     Active Substance: DUPILUMAB
     Indication: DERMATITIS ATOPIC
  2. DUPIXENT [Suspect]
     Active Substance: DUPILUMAB
     Indication: ASTHMA
     Dosage: 300 MG, QOW
     Route: 058
     Dates: start: 2020

REACTIONS (9)
  - Cough [Unknown]
  - Pruritus [Unknown]
  - Wheezing [Unknown]
  - Product use issue [Unknown]
  - Dry skin [Unknown]
  - Chest discomfort [Unknown]
  - Unevaluable event [Unknown]
  - Dyspnoea [Unknown]
  - Eczema [Unknown]

NARRATIVE: CASE EVENT DATE: 2020
